FAERS Safety Report 6694599-2 (Version None)
Quarter: 2010Q2

REPORT INFORMATION
  Report Type: 
  Country: None (occurrence: None)
  Receive Date: 20100423
  Receipt Date: 20100419
  Transmission Date: 20101027
  Serious: Yes (Other)
  Sender: FDA-Public Use
  Company Number: CH-TEVA-231678ISR

PATIENT

DRUGS (1)
  1. COPAXONE [Suspect]
     Dates: start: 20030701, end: 20031001

REACTIONS (1)
  - GLIOMA [None]
